FAERS Safety Report 5054228-0 (Version None)
Quarter: 2006Q3

REPORT INFORMATION
  Report Type: 
  Country: None (occurrence: None)
  Receive Date: 20060718
  Receipt Date: 20060501
  Transmission Date: 20061208
  Serious: Yes (Hospitalization, Other)
  Sender: FDA-Public Use
  Company Number: 2006UW08441

PATIENT
  Age: 79 Year
  Sex: Male
  Weight: 77.1 kg

DRUGS (1)
  1. PULMICORT [Suspect]
     Indication: PROPHYLAXIS
     Dosage: 200 MCG 200 DOSES/UNIT
     Route: 055
     Dates: start: 20020101, end: 20030101

REACTIONS (1)
  - HAEMORRHAGE [None]
